FAERS Safety Report 8603822-6 (Version None)
Quarter: 2012Q3

REPORT INFORMATION
  Report Type: 
  Country: None (occurrence: None)
  Receive Date: 20120818
  Receipt Date: 20120807
  Transmission Date: 20120928
  Serious: Yes (Hospitalization)
  Sender: FDA-Public Use
  Company Number: FR-TEVA-352527ISR

PATIENT
  Sex: Male

DRUGS (7)
  1. 5-FLUOROURACIL (UNSPECIFIED BRANDNAME) [Concomitant]
  2. RAMIPRIL (UNSPECIFIED BRANDNAME) [Concomitant]
  3. TEGRETOL [Concomitant]
  4. FLUVASTATIN SODIUM [Concomitant]
  5. OXALIPLATIN [Suspect]
     Indication: COLON CANCER
     Dosage: 736 MILLIGRAM DAILY;
     Route: 042
     Dates: start: 20120530, end: 20120530
  6. BISOPROLOL FUMARATE AND HYDROCHLOROTHIAZIDE [Concomitant]
  7. LOVENOX [Concomitant]

REACTIONS (4)
  - CHILLS [None]
  - MALAISE [None]
  - HYPOTENSION [None]
  - HYPERTHERMIA [None]
